FAERS Safety Report 10179215 (Version 1)
Quarter: 2014Q2

REPORT INFORMATION
  Report Type: Spontaneous
  Country: US (occurrence: None)
  Receive Date: 20140416
  Receipt Date: 20140416
  Transmission Date: 20141212
  Serious: Yes (Other)
  Sender: FDA-Public Use
  Company Number: 163-POMAL-13123309

PATIENT
  Age: 65 Year
  Sex: Male
  Weight: 75.75 kg

DRUGS (11)
  1. POMALYST [Suspect]
     Indication: PLASMA CELL MYELOMA
     Dosage: 1 IN 1 D
     Route: 048
     Dates: start: 201312
  2. DEXAMETHASONE [Concomitant]
  3. AREDIA (PAMIDRONATE DISODIUM) [Concomitant]
  4. LORAZEPAM [Concomitant]
  5. COLESTIPOL HCL (COLESTIPOL HYDROCHLORIDE) [Concomitant]
  6. CITRUCEL (METHYLCELLULOSE) [Concomitant]
  7. OXYCODONE HCL (OXYCODONE  HYDROCHLORIDE) [Concomitant]
  8. SENNA [Concomitant]
  9. OXYCONTIN (OXYCODONE HYDORCHLORIDE) [Concomitant]
  10. KYPROLIS (CARFILZOMIB) [Concomitant]
  11. PROBIOTIC (BIFIDOBACTERIUM LACTIS) [Concomitant]

REACTIONS (1)
  - Laboratory test abnormal [None]
